FAERS Safety Report 8517936-2 (Version None)
Quarter: 2012Q3

REPORT INFORMATION
  Report Type: 
  Country: None (occurrence: None)
  Receive Date: 20120712
  Receipt Date: 20120712
  Transmission Date: 20120928
  Serious: Yes (Life-Threatening)
  Sender: FDA-Public Use
  Company Number: None

PATIENT
  Age: 38 Year
  Sex: Male
  Weight: 105.3 kg

DRUGS (5)
  1. CATAPRES [Suspect]
     Indication: HYPERTENSION
     Dosage: 0.1 MG QHS PO
     Route: 048
     Dates: start: 20120629, end: 20120709
  2. ACETAMINOPHEN [Concomitant]
  3. ALBUTEROL [Concomitant]
  4. CHOLECALCIFEROL [Concomitant]
  5. MAGNESIUM HYDROXIDE/ALUMINUM HYDROXIDE/SIMETHICONE [Concomitant]

REACTIONS (6)
  - RASH MACULO-PAPULAR [None]
  - NO THERAPEUTIC RESPONSE [None]
  - CRANIOCEREBRAL INJURY [None]
  - ROAD TRAFFIC ACCIDENT [None]
  - PRURITUS [None]
  - CERVICAL VERTEBRAL FRACTURE [None]
